FAERS Safety Report 17241547 (Version 1)
Quarter: 2019Q4

REPORT INFORMATION
  Report Type: Spontaneous
  Country: US (occurrence: US)
  Receive Date: 20191211
  Receipt Date: 20191211
  Transmission Date: 20200122
  Serious: Yes (Hospitalization)
  Sender: FDA-Public Use
  Company Number: None

PATIENT
  Age: 48 Year
  Sex: Male
  Weight: 91.17 kg

DRUGS (1)
  1. SULFAMETHOXAZOLE/TRIMETHOPRIM (SULFAMETHOXAZOLE800MG/TRIMETHOPRIME 160 [Suspect]
     Active Substance: SULFAMETHOXAZOLE\TRIMETHOPRIM
     Indication: SINUSITIS
     Dosage: ?          OTHER DOSE:800/160 MG;?
     Route: 048
     Dates: start: 20190828, end: 20190902

REACTIONS (6)
  - Tongue blistering [None]
  - Rash [None]
  - Oral mucosal blistering [None]
  - Pruritus [None]
  - Erythema multiforme [None]
  - Urticaria [None]

NARRATIVE: CASE EVENT DATE: 20190902
